FAERS Safety Report 5120350-3 (Version None)
Quarter: 2006Q4

REPORT INFORMATION
  Report Type: 
  Country: None (occurrence: None)
  Receive Date: 20061004
  Receipt Date: 20060721
  Transmission Date: 20070319
  Serious: Yes (Other)
  Sender: FDA-Public Use
  Company Number: US-PURDUE-USA_2006_0024692

PATIENT
  Age: 45 Year
  Sex: Male
  Weight: 117 kg

DRUGS (6)
  1. OXYCONTIN [Suspect]
     Indication: PAIN
     Dosage: UNK, SEE TEXT
     Route: 048
     Dates: start: 19980101, end: 20060719
  2. NEURONTIN [Concomitant]
     Indication: NEURALGIA
     Dosage: 2000 MG, DAILY
  3. NORCO [Concomitant]
     Indication: PAIN
     Dosage: 1 TABLET, TID
  4. LORAZEPAM [Concomitant]
     Indication: NEURALGIA
     Dosage: .5 MG, TID
  5. HYZAAR [Concomitant]
     Indication: HYPERTENSION
     Dosage: 50 MG, DAILY
  6. TOPROL-XL [Concomitant]
     Indication: HYPERTENSION
     Dosage: 100 MG, DAILY

REACTIONS (10)
  - BLOOD PRESSURE INCREASED [None]
  - DIARRHOEA [None]
  - DRUG ABUSER [None]
  - DRUG WITHDRAWAL SYNDROME [None]
  - HEART RATE INCREASED [None]
  - HYPERHIDROSIS [None]
  - INAPPROPRIATE SCHEDULE OF DRUG ADMINISTRATION [None]
  - NAUSEA [None]
  - PAIN [None]
  - VOMITING [None]
